FAERS Safety Report 5591030-5 (Version None)
Quarter: 2008Q1

REPORT INFORMATION
  Report Type: 
  Country: None (occurrence: None)
  Receive Date: 20080115
  Receipt Date: 20080109
  Transmission Date: 20080703
  Serious: Yes (Other)
  Sender: FDA-Public Use
  Company Number: PHEH2006US02049

PATIENT
  Age: 54 Year
  Sex: Female
  Weight: 91.609 kg

DRUGS (8)
  1. AREDIA [Suspect]
  2. ZOMETA [Suspect]
  3. LIPITOR [Concomitant]
     Dosage: 10 MG, QD
     Route: 048
  4. PREMARIN [Concomitant]
     Dosage: 0.625 MG, QD
     Route: 048
  5. HYDROCHLOROTHIAZIDE [Concomitant]
     Dosage: 25 MG, QD
     Route: 048
  6. XANAX [Concomitant]
     Dosage: UNK, PRN
  7. ARIMIDEX [Concomitant]
     Dosage: 1 MG, QD
  8. TAMOXIFEN [Concomitant]

REACTIONS (14)
  - CHILLS [None]
  - DYSPNOEA [None]
  - HYPOAESTHESIA [None]
  - METASTATIC NEOPLASM [None]
  - MIDDLE INSOMNIA [None]
  - OSTEONECROSIS [None]
  - PAIN [None]
  - PLEURAL EFFUSION [None]
  - PNEUMONIA [None]
  - PNEUMOTHORAX [None]
  - POSITRON EMISSION TOMOGRAM ABNORMAL [None]
  - PULMONARY CONGESTION [None]
  - WHEEZING [None]
  - X-RAY ABNORMAL [None]
